FAERS Safety Report 5614850-7 (Version None)
Quarter: 2008Q1

REPORT INFORMATION
  Report Type: 
  Country: None (occurrence: None)
  Receive Date: 20080131
  Receipt Date: 20080114
  Transmission Date: 20080703
  Serious: Yes (Other)
  Sender: FDA-Public Use
  Company Number: ENT 2007-0230

PATIENT
  Age: 72 Year
  Sex: Male

DRUGS (15)
  1. COMTAN [Suspect]
     Indication: PARKINSON'S DISEASE
     Dosage: 300 MG ORAL, 200 MG ORAL
     Route: 048
     Dates: start: 20070824, end: 20071101
  2. COMTAN [Suspect]
     Indication: PARKINSON'S DISEASE
     Dosage: 300 MG ORAL, 200 MG ORAL
     Route: 048
     Dates: start: 20071102
  3. CARBIDOPA AND LEVODOPA [Suspect]
     Indication: PARKINSON'S DISEASE
     Dosage: 400 MG, ORAL, 3000 MG, ORAL, 250 MG, ORAL 200 MG, ORAL
     Route: 048
     Dates: start: 20070824, end: 20070901
  4. CARBIDOPA AND LEVODOPA [Suspect]
     Indication: PARKINSON'S DISEASE
     Dosage: 400 MG, ORAL, 3000 MG, ORAL, 250 MG, ORAL 200 MG, ORAL
     Route: 048
     Dates: start: 20070901, end: 20070901
  5. CARBIDOPA AND LEVODOPA [Suspect]
     Indication: PARKINSON'S DISEASE
     Dosage: 400 MG, ORAL, 3000 MG, ORAL, 250 MG, ORAL 200 MG, ORAL
     Route: 048
     Dates: start: 20070901, end: 20071001
  6. CARBIDOPA AND LEVODOPA [Suspect]
     Indication: PARKINSON'S DISEASE
     Dosage: 400 MG, ORAL, 3000 MG, ORAL, 250 MG, ORAL 200 MG, ORAL
     Route: 048
     Dates: start: 20071001
  7. CARBIDOPA AND LEVODOPA [Suspect]
     Indication: PARKINSON'S DISEASE
     Dosage: 400 MG, ORAL, 3000 MG, ORAL, 250 MG, ORAL 200 MG, ORAL
     Route: 048
     Dates: start: 20071102
  8. MYSLEE [Concomitant]
  9. MASHI-NIN-GAN [Concomitant]
  10. SELEGILINE HCL [Concomitant]
  11. SEROQUEL [Concomitant]
  12. ASPIRIN [Concomitant]
  13. ANPLAG [Concomitant]
  14. LASIX [Concomitant]
  15. ALDACTONE [Concomitant]

REACTIONS (7)
  - GAIT DISTURBANCE [None]
  - HALLUCINATION, VISUAL [None]
  - HYPERKINESIA [None]
  - ON AND OFF PHENOMENON [None]
  - RESTLESSNESS [None]
  - SPEECH DISORDER [None]
  - TREMOR [None]
